FAERS Safety Report 5272952-1 (Version None)
Quarter: 2007Q1

REPORT INFORMATION
  Report Type: 
  Country: None (occurrence: None)
  Receive Date: 20061219
  Receipt Date: 20061010
  Transmission Date: 20070707
  Serious: Yes (Hospitalization, Other)
  Sender: FDA-Public Use
  Company Number: US-JNJFOC-20061002999

PATIENT
  Age: 36 Year
  Sex: Female
  Weight: 76.6579 kg

DRUGS (3)
  1. ORTHO EVRA [Suspect]
     Indication: TRANSDERMAL CONTRACEPTION
     Dosage: 1 IN 1 WEEK, TRANSDERMAL
     Route: 062
     Dates: start: 20031001, end: 20040307
  2. ORTHO EVRA [Suspect]
     Indication: TRANSDERMAL CONTRACEPTION
     Dosage: 1 IN 1 WEEK, TRANSDERMAL
     Route: 062
     Dates: start: 20020801
  3. GLYBURIDE [Concomitant]

REACTIONS (2)
  - DEEP VEIN THROMBOSIS [None]
  - PREGNANCY WITH CONTRACEPTIVE DEVICE [None]
